FAERS Safety Report 25117874 (Version 5)
Quarter: 2025Q3

REPORT INFORMATION
  Report Type: Spontaneous
  Country: JP (occurrence: JP)
  Receive Date: 20250325
  Receipt Date: 20250714
  Transmission Date: 20251020
  Serious: Yes (Other)
  Sender: CSL BEHRING
  Company Number: JP-BEH-2024182223

PATIENT
  Age: 51 Year
  Sex: Female
  Weight: 63 kg

DRUGS (9)
  1. HIZENTRA [Suspect]
     Active Substance: HUMAN IMMUNOGLOBULIN G
     Indication: Immunodeficiency common variable
     Route: 058
     Dates: start: 20230922, end: 20230922
  2. HIZENTRA [Suspect]
     Active Substance: HUMAN IMMUNOGLOBULIN G
     Indication: Hypogammaglobulinaemia
  3. LANSOPRAZOLE [Concomitant]
     Active Substance: LANSOPRAZOLE
  4. METHYLCOBALAMIN [Concomitant]
     Active Substance: METHYLCOBALAMIN
  5. MOSAPRIDE CITRATE [Concomitant]
     Active Substance: MOSAPRIDE CITRATE
  6. MEXITIL [Concomitant]
     Active Substance: MEXILETINE HYDROCHLORIDE
  7. TRAMCET [Concomitant]
     Active Substance: ACETAMINOPHEN\TRAMADOL
     Route: 048
  8. TEGRETOL [Concomitant]
     Active Substance: CARBAMAZEPINE
  9. CLONAZEPAM [Concomitant]
     Active Substance: CLONAZEPAM

REACTIONS (7)
  - Anaphylactic shock [Recovered/Resolved]
  - Throat tightness [Recovered/Resolved]
  - Erythema [Recovered/Resolved]
  - Oxygen saturation decreased [Recovered/Resolved]
  - Cough [Recovered/Resolved]
  - Pruritus [Recovered/Resolved]
  - Anaphylactic reaction [Recovered/Resolved]

NARRATIVE: CASE EVENT DATE: 20230922
